FAERS Safety Report 5345664-3 (Version None)
Quarter: 2007Q2

REPORT INFORMATION
  Report Type: 
  Country: None (occurrence: None)
  Receive Date: 20070424
  Receipt Date: 20070122
  Transmission Date: 20071010
  Serious: Yes (Other)
  Sender: FDA-Public Use
  Company Number: TEST00207000186

PATIENT
  Age: 78 Year
  Sex: Male

DRUGS (1)
  1. ANDROGEL [Suspect]
     Dosage: 5 GRAM(S) QD TRANSCUTANEOUS DAILY DOSE:  5 GRAM(S

REACTIONS (1)
  - PROSTATE CANCER [None]
